FAERS Safety Report 4493130-X (Version None)
Quarter: 2004Q4

REPORT INFORMATION
  Report Type: 
  Country: None (occurrence: None)
  Receive Date: 20041104
  Receipt Date: 20041029
  Transmission Date: 20050328
  Serious: Yes (Other)
  Sender: FDA-Public Use
  Company Number: US-BRISTOL-MYERS SQUIBB COMPANY-12751194

PATIENT
  Age: 77 Year
  Sex: Female
  Weight: 68 kg

DRUGS (7)
  1. TEQUIN [Suspect]
     Indication: BRONCHITIS
     Route: 048
     Dates: start: 20041014, end: 20041018
  2. METFORMIN HCL [Concomitant]
  3. AMARYL [Concomitant]
  4. LISINOPRIL [Concomitant]
     Indication: HYPERTENSION
  5. ATENOLOL [Concomitant]
  6. NEXIUM [Concomitant]
  7. ASPIRIN [Concomitant]
     Dosage: ^FOR A LONG TIME^

REACTIONS (3)
  - HYPOAESTHESIA ORAL [None]
  - HYPOGLYCAEMIA [None]
  - TREMOR [None]
